FAERS Safety Report 15010568 (Version 2)
Quarter: 2018Q3

REPORT INFORMATION
  Report Type: Spontaneous
  Country: US (occurrence: US)
  Receive Date: 20180614
  Receipt Date: 20180830
  Transmission Date: 20181010
  Serious: No
  Sender: FDA-Public Use
  Company Number: US-PFIZER INC-2018239449

PATIENT
  Sex: Female

DRUGS (1)
  1. METHYLPREDNISOLONE. [Suspect]
     Active Substance: METHYLPREDNISOLONE
     Dosage: UNK (TABLET)

REACTIONS (6)
  - Circumstance or information capable of leading to medication error [Unknown]
  - Product label issue [Unknown]
  - Arthropod bite [Unknown]
  - Musculoskeletal pain [Unknown]
  - Nerve compression [Unknown]
  - Immune system disorder [Unknown]
